FAERS Safety Report 9207821 (Version 1)
Quarter: 2013Q2

REPORT INFORMATION
  Report Type: Report from Study
  Country: JP (occurrence: JP)
  Receive Date: 20130403
  Receipt Date: 20130403
  Transmission Date: 20140414
  Serious: Yes (Other)
  Sender: FDA-Public Use
  Company Number: JP-GLAXOSMITHKLINE-B0598519A

PATIENT
  Age: 42 Year
  Sex: Female
  Weight: 45 kg

DRUGS (29)
  1. TYKERB [Suspect]
     Indication: BREAST CANCER
     Route: 048
     Dates: start: 20090928, end: 20091111
  2. TYKERB [Suspect]
     Indication: BREAST CANCER
     Route: 048
     Dates: start: 20091125, end: 20091227
  3. TYKERB [Suspect]
     Indication: BREAST CANCER
     Route: 048
     Dates: start: 20100113, end: 20100207
  4. TYKERB [Suspect]
     Indication: BREAST CANCER
     Route: 048
     Dates: start: 20100224, end: 20100316
  5. TYKERB [Suspect]
     Indication: BREAST CANCER
     Route: 048
     Dates: start: 20100317, end: 20100426
  6. TYKERB [Suspect]
     Indication: BREAST CANCER
     Route: 048
     Dates: start: 20100507, end: 20100724
  7. XELODA [Suspect]
     Indication: PRODUCT USED FOR UNKNOWN INDICATION
     Route: 048
     Dates: start: 20090928, end: 20091002
  8. XELODA [Suspect]
     Indication: PRODUCT USED FOR UNKNOWN INDICATION
     Route: 048
     Dates: start: 20091003, end: 20091111
  9. XELODA [Suspect]
     Indication: PRODUCT USED FOR UNKNOWN INDICATION
     Route: 048
     Dates: start: 20091125, end: 20091227
  10. XELODA [Suspect]
     Indication: PRODUCT USED FOR UNKNOWN INDICATION
     Route: 048
     Dates: start: 20100113, end: 20100207
  11. XELODA [Suspect]
     Indication: PRODUCT USED FOR UNKNOWN INDICATION
     Route: 048
     Dates: start: 20100224, end: 20100426
  12. XELODA [Suspect]
     Indication: PRODUCT USED FOR UNKNOWN INDICATION
     Route: 048
     Dates: start: 20100507, end: 20100724
  13. GOSERELIN ACETATE [Concomitant]
     Indication: BREAST CANCER
     Dosage: 3.6MG IN THE MORNING
     Route: 058
  14. EXEMESTANE [Concomitant]
     Indication: BREAST CANCER
     Route: 048
     Dates: end: 20100724
  15. TASMOLIN [Concomitant]
     Indication: SCHIZOPHRENIA
     Route: 048
  16. WYPAX [Concomitant]
     Indication: SCHIZOPHRENIA
     Route: 048
  17. RISPERDAL [Concomitant]
     Indication: SCHIZOPHRENIA
     Route: 048
  18. LONASEN [Concomitant]
     Indication: SCHIZOPHRENIA
     Route: 048
  19. ROHYPNOL [Concomitant]
     Indication: INSOMNIA
     Route: 048
  20. LUVOX [Concomitant]
     Indication: INSOMNIA
     Route: 048
  21. LENDORMIN [Concomitant]
     Indication: INSOMNIA
     Route: 048
  22. FORSENID [Concomitant]
     Indication: CONSTIPATION
     Route: 048
  23. CALONAL [Concomitant]
     Indication: CANCER PAIN
     Route: 048
  24. OXYCONTIN [Concomitant]
     Indication: CANCER PAIN
     Route: 048
  25. OXINORM [Concomitant]
     Indication: CANCER PAIN
     Route: 048
  26. PYDOXAL [Concomitant]
     Indication: HYPERKERATOSIS
     Route: 048
  27. PETROLATUM SALICYLATE [Concomitant]
     Indication: HYPERKERATOSIS
     Route: 061
  28. CETLAT [Concomitant]
     Indication: INFECTION PROPHYLAXIS
     Route: 048
     Dates: start: 20100628, end: 20100630
  29. CLARITH [Concomitant]
     Indication: POST PROCEDURAL INFECTION
     Route: 048
     Dates: start: 20100707, end: 20100713

REACTIONS (27)
  - Postoperative wound infection [Recovering/Resolving]
  - Electrocardiogram low voltage [Not Recovered/Not Resolved]
  - Palmar-plantar erythrodysaesthesia syndrome [Recovering/Resolving]
  - Upper respiratory tract infection [Recovering/Resolving]
  - Pyrexia [Unknown]
  - Cough [Unknown]
  - Productive cough [Unknown]
  - White blood cell count increased [Unknown]
  - C-reactive protein increased [Unknown]
  - Paronychia [Recovering/Resolving]
  - Palmar-plantar erythrodysaesthesia syndrome [Recovering/Resolving]
  - Musculoskeletal pain [Recovering/Resolving]
  - Blood creatine phosphokinase increased [Unknown]
  - Paronychia [Recovering/Resolving]
  - Upper respiratory tract infection [Recovering/Resolving]
  - Pyrexia [Unknown]
  - Laryngeal pain [Unknown]
  - C-reactive protein increased [Unknown]
  - Paronychia [Recovering/Resolving]
  - Palmar-plantar erythrodysaesthesia syndrome [Recovering/Resolving]
  - Paronychia [Recovering/Resolving]
  - Rash [Recovering/Resolving]
  - Diarrhoea [Recovering/Resolving]
  - Blood creatine phosphokinase increased [Recovering/Resolving]
  - Blood creatinine increased [Recovering/Resolving]
  - Diarrhoea [Recovering/Resolving]
  - White blood cell count decreased [Recovering/Resolving]
